FAERS Safety Report 8623946-7 (Version None)
Quarter: 2012Q3

REPORT INFORMATION
  Report Type: 
  Country: None (occurrence: None)
  Receive Date: 20120827
  Receipt Date: 20120824
  Transmission Date: 20120928
  Serious: Yes (Hospitalization, Other)
  Sender: FDA-Public Use
  Company Number: PHFR2012GB003818

PATIENT
  Sex: Male
  Weight: 62 kg

DRUGS (9)
  1. PAROXETINE HCL [Concomitant]
     Dosage: 60 MG, QD
     Route: 048
  2. SIMVASTATIN [Concomitant]
     Dosage: 20 MG, QD
     Route: 048
  3. CLOZARIL [Suspect]
     Dosage: 375 MG, QD
     Dates: start: 20120703
  4. ATENOLOL [Concomitant]
     Dosage: 50 MG, QD
  5. DOXAZOSIN MESYLATE [Concomitant]
     Dosage: 2 MG, QD
     Route: 048
  6. CLOZARIL [Suspect]
     Dosage: 4 TO 6 TABLETS
     Dates: start: 20120629
  7. AMISULPRIDE [Concomitant]
     Indication: PSYCHOTIC DISORDER
     Dosage: 300 MG, DAILY
     Route: 048
  8. CLOZARIL [Suspect]
     Indication: PSYCHOTIC DISORDER
     Dosage: 375 MG, DAILY
     Route: 048
     Dates: start: 20110820
  9. ARIPIPRAZOLE [Concomitant]
     Indication: PSYCHOTIC DISORDER
     Dosage: 10 MG, DAILY
     Route: 048

REACTIONS (4)
  - OVERDOSE [None]
  - DEPRESSION [None]
  - SCHIZOPHRENIA, PARANOID TYPE [None]
  - LOSS OF CONSCIOUSNESS [None]
